FAERS Safety Report 6218934-4 (Version None)
Quarter: 2009Q2

REPORT INFORMATION
  Report Type: 
  Country: None (occurrence: None)
  Receive Date: 20090608
  Receipt Date: 20090602
  Transmission Date: 20091009
  Serious: Yes (Other)
  Sender: FDA-Public Use
  Company Number: US-AMGEN-US345024

PATIENT
  Sex: Female
  Weight: 64.9 kg

DRUGS (2)
  1. NPLATE [Suspect]
     Indication: IDIOPATHIC THROMBOCYTOPENIC PURPURA
     Route: 058
     Dates: start: 20090122, end: 20090422
  2. BENADRYL [Concomitant]
     Route: 048

REACTIONS (3)
  - NON-NEUTRALISING ANTIBODIES POSITIVE [None]
  - PLATELET COUNT INCREASED [None]
  - THERAPEUTIC RESPONSE DECREASED [None]
